FAERS Safety Report 8036848-4 (Version None)
Quarter: 2012Q1

REPORT INFORMATION
  Report Type: 
  Country: None (occurrence: None)
  Receive Date: 20120111
  Receipt Date: 20120106
  Transmission Date: 20120608
  Serious: No
  Sender: FDA-Public Use
  Company Number: US-PFIZER INC-2012004917

PATIENT
  Sex: Female
  Weight: 72.562 kg

DRUGS (5)
  1. LOTREL [Concomitant]
     Dosage: UNK
  2. METOPROLOL [Concomitant]
     Dosage: UNK
  3. CRESTOR [Concomitant]
     Dosage: UNK
  4. PRADAXA [Concomitant]
     Dosage: UNK
  5. LATANOPROST [Suspect]
     Indication: GLAUCOMA
     Dosage: ONE DROP IN EACH EYE TWO TIMES A DAY
     Route: 047
     Dates: start: 20110601

REACTIONS (5)
  - OCULAR HYPERAEMIA [None]
  - EYELID IRRITATION [None]
  - EYE IRRITATION [None]
  - EYE PRURITUS [None]
  - BLOOD CHOLESTEROL INCREASED [None]
